FAERS Safety Report 7462825-8 (Version None)
Quarter: 2011Q2

REPORT INFORMATION
  Report Type: 
  Country: None (occurrence: None)
  Receive Date: 20110506
  Receipt Date: 20110222
  Transmission Date: 20111010
  Serious: No
  Sender: FDA-Public Use
  Company Number: US-BAYER-2011-017294

PATIENT
  Sex: Female

DRUGS (2)
  1. AVELOX [Suspect]
     Indication: LARYNGITIS
     Dosage: 400 MG, QD
     Route: 048
     Dates: start: 20110201
  2. AVELOX [Suspect]
     Indication: OROPHARYNGEAL PAIN

REACTIONS (4)
  - ERYTHEMA [None]
  - DIZZINESS [None]
  - PYREXIA [None]
  - SKIN EXFOLIATION [None]
